FAERS Safety Report 25537599 (Version 4)
Quarter: 2025Q3

REPORT INFORMATION
  Report Type: Spontaneous
  Country: EU (occurrence: EU)
  Receive Date: 20250710
  Receipt Date: 20250807
  Transmission Date: 20251021
  Serious: Yes (Hospitalization, Other)
  Sender: AUROBINDO
  Company Number: EU-TOWA-202502959

PATIENT
  Age: 78 Year
  Sex: Female

DRUGS (2)
  1. OMEPRAZOLE [Suspect]
     Active Substance: OMEPRAZOLE
     Indication: Chronic gastritis
     Route: 065
  2. FLUOXETINE [Concomitant]
     Active Substance: FLUOXETINE HYDROCHLORIDE
     Indication: Depression
     Route: 065

REACTIONS (6)
  - Neutropenia [Recovered/Resolved]
  - Normocytic anaemia [Recovering/Resolving]
  - Folate deficiency [Recovered/Resolved]
  - Anaemia [Recovered/Resolved]
  - Bronchitis [Unknown]
  - Malabsorption [Unknown]
